FAERS Safety Report 14417416 (Version 1)
Quarter: 2018Q1

REPORT INFORMATION
  Report Type: Not Available
  Country: GB (occurrence: GB)
  Receive Date: 20180122
  Receipt Date: 20180122
  Transmission Date: 20180509
  Serious: Yes (Other)
  Sender: FDA-Public Use
  Company Number: GB-IDTAUSTRALIA-2018-UK-000001

PATIENT
  Age: 16 Year
  Sex: Female

DRUGS (2)
  1. CLARITHROMYCIN EXTENDED-RELEASE (NON-SPECIFIC) [Suspect]
     Active Substance: CLARITHROMYCIN
     Route: 048
  2. SIROLIMUS. [Suspect]
     Active Substance: SIROLIMUS
     Dosage: 4.25 MG/SQUARE-METER/DAY

REACTIONS (2)
  - Diabetes mellitus [Unknown]
  - Drug interaction [Unknown]
